FAERS Safety Report 8925604 (Version 4)
Quarter: 2013Q1

REPORT INFORMATION
  Report Type: Spontaneous
  Country: IT (occurrence: IT)
  Receive Date: 20121126
  Receipt Date: 20130118
  Transmission Date: 20140127
  Serious: Yes (Hospitalization)
  Sender: FDA-Public Use
  Company Number: IT-PFIZER INC-2012291842

PATIENT
  Age: 31 Year
  Sex: Female

DRUGS (4)
  1. XANAX [Suspect]
     Dosage: 350 MG, TOTAL DOSE
     Route: 048
     Dates: start: 20121101, end: 20121101
  2. FLUOXETINE HYDROCHLORIDE [Suspect]
     Dosage: 30 MG, TOTAL DOSE
     Route: 048
     Dates: start: 20121101, end: 20121101
  3. DIAZEPAM [Suspect]
     Dosage: 14 DROPS, TOTAL DOSE
     Route: 048
     Dates: start: 20121101, end: 20121101
  4. DEPAKIN [Suspect]
     Dosage: 100 MG, TOTAL DOSE
     Route: 048
     Dates: start: 20121101, end: 20121101

REACTIONS (2)
  - Drug abuse [Unknown]
  - Sopor [Recovering/Resolving]
